FAERS Safety Report 4844624-6 (Version None)
Quarter: 2005Q4

REPORT INFORMATION
  Report Type: 
  Country: None (occurrence: None)
  Receive Date: 20051125
  Receipt Date: 20051116
  Transmission Date: 20060501
  Serious: Yes (Death)
  Sender: FDA-Public Use
  Company Number: HQWYE581416NOV05

PATIENT
  Age: 68 Year
  Sex: Male

DRUGS (20)
  1. MYLOTARG [Suspect]
     Indication: ACUTE MYELOID LEUKAEMIA RECURRENT
     Dosage: 9 MG/M^2 1X PER 1 DAY, INTRAVENOUS DRIP
     Route: 041
     Dates: start: 20051104, end: 20051104
  2. DAUNORUBICIN HYDROCHLORIDE [Concomitant]
  3. INSULIN [Concomitant]
  4. BASEN (VOGLIBOSE) [Concomitant]
  5. BUFFERIN [Concomitant]
  6. RABEPRAZOLE SODIUM [Concomitant]
  7. DAONIL (GLIBENCLAMIDE) [Concomitant]
  8. EVIPROSTAT [Concomitant]
  9. GLUCOBAY [Concomitant]
  10. MAGNESIUM OXIDE (MAGNESIUM OXIDE) [Concomitant]
  11. MAGNESIUM HYDROXIDE (MAGNESIUM HYDROXIDE) [Concomitant]
  12. ALLOPURINOL [Concomitant]
  13. FRAGMIN [Concomitant]
  14. MEROPEN (MEROPENEM) [Concomitant]
  15. FUNGUARD (MICAFUNGIN SODIUM) [Concomitant]
  16. TARGOCID [Concomitant]
  17. ANTITHROMBIN III (ANTITHROMBIN III) [Concomitant]
  18. ACETAMINOPHEN [Concomitant]
  19. DIPHENHYDRAMINE HCL [Concomitant]
  20. HYDROCORTISONE SODIUM PHOSPHATE (HYDROCORTISONE SODIUM PHOSPHATE) [Concomitant]

REACTIONS (16)
  - APNOEA [None]
  - BLAST CELL COUNT INCREASED [None]
  - BLOOD PRESSURE INCREASED [None]
  - DISEASE PROGRESSION [None]
  - DISSEMINATED INTRAVASCULAR COAGULATION [None]
  - DIZZINESS [None]
  - FEBRILE NEUTROPENIA [None]
  - GLUCOSE URINE PRESENT [None]
  - HEPATIC FAILURE [None]
  - HYPERHIDROSIS [None]
  - OXYGEN SATURATION DECREASED [None]
  - PLEURAL EFFUSION [None]
  - PROTEIN URINE PRESENT [None]
  - RENAL IMPAIRMENT [None]
  - VENOOCCLUSIVE LIVER DISEASE [None]
  - WHITE BLOOD CELL COUNT INCREASED [None]
